FAERS Safety Report 5157050-X (Version None)
Quarter: 2006Q4

REPORT INFORMATION
  Report Type: 
  Country: None (occurrence: None)
  Receive Date: 20061127
  Receipt Date: 20061115
  Transmission Date: 20070319
  Serious: Yes (Other)
  Sender: FDA-Public Use
  Company Number: PHEH2006US14280

PATIENT
  Sex: Female

DRUGS (2)
  1. ZOMETA [Suspect]
  2. AREDIA [Suspect]

REACTIONS (5)
  - DECREASED INTEREST [None]
  - GENERAL PHYSICAL HEALTH DETERIORATION [None]
  - INJURY [None]
  - OSTEONECROSIS [None]
  - PAIN [None]
